FAERS Safety Report 7354843-5 (Version None)
Quarter: 2011Q1

REPORT INFORMATION
  Report Type: 
  Country: None (occurrence: None)
  Receive Date: 20110307
  Receipt Date: 20110221
  Transmission Date: 20110831
  Serious: Yes (Hospitalization, Other)
  Sender: FDA-Public Use
  Company Number: 2011AP000316

PATIENT
  Sex: Female

DRUGS (3)
  1. CIPROFLOXACIN [Suspect]
     Indication: VAGINAL INFECTION
     Dates: start: 20050101
  2. CLINDAMYCIN HYDROCHLORIDE [Suspect]
     Indication: VAGINAL INFECTION
     Dates: start: 20050101, end: 20050101
  3. FLUCONAZOLE [Concomitant]

REACTIONS (5)
  - DIARRHOEA [None]
  - MEGACOLON [None]
  - CLOSTRIDIUM DIFFICILE COLITIS [None]
  - ABDOMINAL PAIN [None]
  - VOMITING [None]
